FAERS Safety Report 13515621 (Version 1)
Quarter: 2017Q2

REPORT INFORMATION
  Report Type: Spontaneous
  Country: US (occurrence: US)
  Receive Date: 20170504
  Receipt Date: 20170504
  Transmission Date: 20170830
  Serious: No
  Sender: FDA-Public Use
  Company Number: US-BAXALTA-2017BLT002592

PATIENT
  Sex: Female

DRUGS (2)
  1. VONVENDI [Suspect]
     Active Substance: VON WILLEBRAND FACTOR (RECOMBINANT)
     Indication: PRODUCT USED FOR UNKNOWN INDICATION
     Dosage: 4 ML/MIN
     Route: 065
  2. ADVATE [Suspect]
     Active Substance: ANTIHEMOPHILIC FACTOR, HUMAN RECOMBINANT
     Indication: PRODUCT USED FOR UNKNOWN INDICATION
     Dosage: 10 ML/MIN
     Route: 065

REACTIONS (3)
  - Dizziness [Unknown]
  - Muscle twitching [Unknown]
  - Palpitations [Unknown]
